FAERS Safety Report 19755568 (Version 1)
Quarter: 2021Q3

REPORT INFORMATION
  Report Type: Spontaneous
  Country: US (occurrence: US)
  Receive Date: 20210827
  Receipt Date: 20210827
  Transmission Date: 20211014
  Serious: Yes (Other)
  Sender: FDA-Public Use
  Company Number: US-ASTELLAS-2021US031014

PATIENT
  Age: 85 Year
  Sex: Male

DRUGS (1)
  1. XTANDI [Suspect]
     Active Substance: ENZALUTAMIDE
     Indication: PROSTATE CANCER
     Dosage: 160 MG, ONCE DAILY (2 TABLETS)
     Route: 048
     Dates: start: 20210811

REACTIONS (6)
  - Kidney infection [Recovered/Resolved]
  - Product taste abnormal [Not Recovered/Not Resolved]
  - Dizziness [Recovered/Resolved]
  - Oropharyngeal pain [Not Recovered/Not Resolved]
  - Fall [Recovered/Resolved]
  - Product use complaint [Not Recovered/Not Resolved]

NARRATIVE: CASE EVENT DATE: 202108
